FAERS Safety Report 6254151-X (Version None)
Quarter: 2009Q2

REPORT INFORMATION
  Report Type: 
  Country: None (occurrence: None)
  Receive Date: 20090629
  Receipt Date: 20081201
  Transmission Date: 20091009
  Serious: Yes (Hospitalization)
  Sender: FDA-Public Use
  Company Number: PROG00208005009

PATIENT
  Age: 66 Year
  Sex: Female
  Weight: 51 kg

DRUGS (1)
  1. PROMETRIUM [Suspect]
     Indication: ILL-DEFINED DISORDER
     Dosage: 400 MILLIGRAM(S) QD ORAL DAILY DOSE: 400 MILLIGRAM(S) ONCE
     Route: 048
     Dates: start: 20080913, end: 20080913

REACTIONS (2)
  - CHEST DISCOMFORT [None]
  - HYPOAESTHESIA [None]
